FAERS Safety Report 23612559 (Version 7)
Quarter: 2024Q3

REPORT INFORMATION
  Report Type: Spontaneous
  Country: US (occurrence: US)
  Receive Date: 20240308
  Receipt Date: 20240827
  Transmission Date: 20241016
  Serious: No
  Sender: PFIZER
  Company Number: US-PFIZER INC-202400058499

PATIENT
  Age: 53 Year
  Sex: Female

DRUGS (3)
  1. PREMPRO [Suspect]
     Active Substance: ESTROGENS, CONJUGATED\MEDROXYPROGESTERONE ACETATE
     Dosage: UNK
  2. PREMPRO [Suspect]
     Active Substance: ESTROGENS, CONJUGATED\MEDROXYPROGESTERONE ACETATE
     Dosage: 0.3 MG/1.5 MG - (1 X 28)
  3. PREMPRO [Suspect]
     Active Substance: ESTROGENS, CONJUGATED\MEDROXYPROGESTERONE ACETATE
     Dosage: 0.625 MG/2.5 MG - (1 X 28)

REACTIONS (10)
  - Feeling abnormal [Unknown]
  - Road traffic accident [Unknown]
  - Menopause [Unknown]
  - Hot flush [Unknown]
  - Mood altered [Unknown]
  - Night sweats [Unknown]
  - Insomnia [Unknown]
  - Libido decreased [Unknown]
  - Product dispensing error [Unknown]
  - Incorrect dose administered [Unknown]
